FAERS Safety Report 5915665-2 (Version None)
Quarter: 2008Q4

REPORT INFORMATION
  Report Type: 
  Country: None (occurrence: None)
  Receive Date: 20081010
  Receipt Date: 20081001
  Transmission Date: 20090506
  Serious: Yes (Death, Hospitalization, Other)
  Sender: FDA-Public Use
  Company Number: US-PFIZER INC-2008047529

PATIENT
  Sex: Female
  Weight: 50 kg

DRUGS (5)
  1. CHANTIX [Suspect]
     Indication: SMOKING CESSATION THERAPY
     Dates: start: 20070928, end: 20071111
  2. LIPITOR [Interacting]
     Indication: BLOOD CHOLESTEROL INCREASED
     Dates: start: 20070101, end: 20070101
  3. MULTI-VITAMINS [Concomitant]
  4. FOSAMAX [Concomitant]
  5. VERAPAMIL [Concomitant]

REACTIONS (30)
  - ABNORMAL DREAMS [None]
  - APATHY [None]
  - ASPARTATE AMINOTRANSFERASE DECREASED [None]
  - ASTHENIA [None]
  - BACK PAIN [None]
  - BEDRIDDEN [None]
  - BLOOD ALBUMIN DECREASED [None]
  - BLOOD ALKALINE PHOSPHATASE DECREASED [None]
  - BLOOD ALKALINE PHOSPHATASE INCREASED [None]
  - BLOOD CALCIUM INCREASED [None]
  - BLOOD POTASSIUM DECREASED [None]
  - C-REACTIVE PROTEIN INCREASED [None]
  - CONSTIPATION [None]
  - DECREASED ACTIVITY [None]
  - DECREASED APPETITE [None]
  - DECREASED INTEREST [None]
  - DEPRESSED MOOD [None]
  - DISSOCIATION [None]
  - DRUG INTERACTION [None]
  - HALLUCINATION [None]
  - HYPERSOMNIA [None]
  - INTESTINAL PERFORATION [None]
  - IRRITABILITY [None]
  - LETHARGY [None]
  - MULTI-ORGAN FAILURE [None]
  - NAUSEA [None]
  - RED BLOOD CELL SEDIMENTATION RATE INCREASED [None]
  - SELF-MEDICATION [None]
  - VOMITING [None]
  - WEIGHT DECREASED [None]
